FAERS Safety Report 8007277-4 (Version None)
Quarter: 2011Q4

REPORT INFORMATION
  Report Type: 
  Country: None (occurrence: None)
  Receive Date: 20111227
  Receipt Date: 20111221
  Transmission Date: 20120403
  Serious: Yes (Death)
  Sender: FDA-Public Use
  Company Number: PE-PFIZER INC-2011311988

PATIENT
  Age: 84 Year
  Sex: Male

DRUGS (1)
  1. NORVASC [Suspect]
     Dosage: 5 MG, 1X/DAY
     Route: 048

REACTIONS (1)
  - DEATH [None]
